FAERS Safety Report 7040395-6 (Version None)
Quarter: 2010Q4

REPORT INFORMATION
  Report Type: 
  Country: None (occurrence: None)
  Receive Date: 20101008
  Receipt Date: 20101008
  Transmission Date: 20110411
  Serious: Yes (Other)
  Sender: FDA-Public Use
  Company Number: None

PATIENT
  Age: 33 Year
  Sex: Male
  Weight: 59.4212 kg

DRUGS (1)
  1. WELLBUTRIN GENERIC 150 MG [Suspect]
     Dosage: 150 MG DAILY PO
     Route: 048
     Dates: start: 20080101

REACTIONS (5)
  - DRY MOUTH [None]
  - FATIGUE [None]
  - HOT FLUSH [None]
  - IRRITABILITY [None]
  - NIGHT SWEATS [None]
